FAERS Safety Report 18833414 (Version 2)
Quarter: 2021Q1

REPORT INFORMATION
  Report Type: Report from Study
  Country: None (occurrence: US)
  Receive Date: 20210203
  Receipt Date: 20210215
  Transmission Date: 20210419
  Serious: Yes (Other)
  Sender: FDA-Public Use
  Company Number: US-ABBVIE-20K-163-3691197-00

PATIENT
  Age: 41 Year
  Sex: Male
  Weight: 73.55 kg

DRUGS (2)
  1. HUMIRA [Suspect]
     Active Substance: ADALIMUMAB
     Route: 058
     Dates: start: 202012
  2. HUMIRA [Suspect]
     Active Substance: ADALIMUMAB
     Indication: CROHN^S DISEASE
     Route: 058
     Dates: start: 2016, end: 202012

REACTIONS (8)
  - Colitis [Recovering/Resolving]
  - Haemoglobin decreased [Recovered/Resolved]
  - Food intolerance [Unknown]
  - Drug level decreased [Recovering/Resolving]
  - Back pain [Recovering/Resolving]
  - Crohn^s disease [Recovering/Resolving]
  - Abnormal faeces [Recovered/Resolved]
  - Abdominal discomfort [Not Recovered/Not Resolved]

NARRATIVE: CASE EVENT DATE: 202008
